FAERS Safety Report 6079412-9 (Version None)
Quarter: 2009Q1

REPORT INFORMATION
  Report Type: 
  Country: None (occurrence: None)
  Receive Date: 20090216
  Receipt Date: 20090203
  Transmission Date: 20090719
  Serious: Yes (Hospitalization, Other)
  Sender: FDA-Public Use
  Company Number: US-ELI_LILLY_AND_COMPANY-US200902000517

PATIENT
  Sex: Female

DRUGS (7)
  1. FORTEO [Suspect]
     Indication: OSTEOPOROSIS
     Dosage: 20 UG, DAILY (1/D)
     Dates: start: 20071001
  2. RAZADYNE ER [Concomitant]
     Dosage: 1 D/F, DAILY (1/D)
  3. LEXAPRO [Concomitant]
     Dosage: 10 MG, DAILY (1/D)
  4. VITAMIN B-12 [Concomitant]
     Dosage: UNK, MONTHLY (1/M)
  5. CALCIUM                                 /N/A/ [Concomitant]
     Dosage: 500 MG, 2/D
  6. VITAMIN D3 [Concomitant]
     Dosage: 1000 IU, DAILY (1/D)
  7. IRON [Concomitant]
     Dosage: 1000 MG, DAILY (1/D)

REACTIONS (6)
  - ACCIDENTAL OVERDOSE [None]
  - ANAEMIA [None]
  - FALL [None]
  - HEAD INJURY [None]
  - LABORATORY TEST ABNORMAL [None]
  - MEDICATION ERROR [None]
